FAERS Safety Report 5127313-2 (Version None)
Quarter: 2006Q4

REPORT INFORMATION
  Report Type: 
  Country: None (occurrence: None)
  Receive Date: 20061013
  Receipt Date: 20061006
  Transmission Date: 20070319
  Serious: Yes (Other)
  Sender: FDA-Public Use
  Company Number: GB-ABBOTT-06P-167-0346278-00

PATIENT
  Sex: Male

DRUGS (2)
  1. EPILIM [Suspect]
     Indication: MIGRAINE
  2. EPILIM [Suspect]

REACTIONS (3)
  - DEAFNESS [None]
  - EAR INFECTION [None]
  - EAR PAIN [None]
